FAERS Safety Report 6532883-3 (Version None)
Quarter: 2010Q1

REPORT INFORMATION
  Report Type: 
  Country: None (occurrence: None)
  Receive Date: 20100111
  Receipt Date: 20091229
  Transmission Date: 20100710
  Serious: Yes (Hospitalization)
  Sender: FDA-Public Use
  Company Number: US-ELI_LILLY_AND_COMPANY-US200912006170

PATIENT
  Sex: Female

DRUGS (20)
  1. FORTEO [Suspect]
     Indication: OSTEOPOROSIS
     Dosage: 20 UG, DAILY (1/D)
     Dates: end: 20091226
  2. FORTEO [Suspect]
     Dosage: 20 UG, DAILY (1/D)
     Dates: start: 20091201
  3. LOVASTATIN [Concomitant]
     Dosage: 40 MG, UNK
  4. PREDNISONE [Concomitant]
     Dosage: 5 MG, UNK
  5. BUSPAR [Concomitant]
     Dosage: 10 MG, UNK
  6. PLAVIX [Concomitant]
     Dosage: 75 MG, UNK
  7. ALLEGRA [Concomitant]
     Dosage: 60 MG, UNK
  8. PLAQUENIL [Concomitant]
     Dosage: 200 MG, UNK
  9. MIRAPEX [Concomitant]
     Dosage: 0.25 MG, UNK
  10. MELOXICAM [Concomitant]
     Dosage: 15 MG, UNK
  11. OMEPRAZOLE [Concomitant]
     Dosage: 20 MG, UNK
  12. NEURONTIN [Concomitant]
     Dosage: 300 MG, UNK
  13. NITROSTAT [Concomitant]
     Dosage: 0.4 MG, AS NEEDED
  14. LISINOPRIL [Concomitant]
     Dosage: 2.5 MG, UNK
  15. COMBIVENT [Concomitant]
     Dosage: UNK, AS NEEDED
     Route: 055
  16. ALBUTEROL [Concomitant]
     Route: 055
  17. IMDUR [Concomitant]
     Dosage: 30 MG, UNK
  18. MULTI-VITAMIN [Concomitant]
  19. VITAMIN C [Concomitant]
     Dosage: 1000 MG, UNK
  20. ACETYLCYSTEINE [Concomitant]
     Dosage: 600 MG, UNK

REACTIONS (2)
  - ASTHENIA [None]
  - BRONCHITIS [None]
